FAERS Safety Report 10180036 (Version 1)
Quarter: 2014Q2

REPORT INFORMATION
  Report Type: Spontaneous
  Country: US (occurrence: US)
  Receive Date: 20140519
  Receipt Date: 20140519
  Transmission Date: 20141212
  Serious: No
  Sender: FDA-Public Use
  Company Number: US-AMGEN INC.-USASP2013073275

PATIENT
  Age: 83 Year
  Sex: Female

DRUGS (3)
  1. PROLIA [Suspect]
     Indication: OSTEOPOROSIS POSTMENOPAUSAL
     Route: 065
  2. LOSARTAN [Concomitant]
     Route: 065
  3. CALTRATE                           /00944201/ [Concomitant]
     Route: 065

REACTIONS (3)
  - Muscular weakness [Recovering/Resolving]
  - Tremor [Recovering/Resolving]
  - Weight control [Recovering/Resolving]
